FAERS Safety Report 16186139 (Version 1)
Quarter: 2019Q2

REPORT INFORMATION
  Report Type: Spontaneous
  Country: US (occurrence: US)
  Receive Date: 20190411
  Receipt Date: 20190411
  Transmission Date: 20190711
  Serious: Yes (Other)
  Sender: FDA-Public Use
  Company Number: US-SA-2019SA014453

PATIENT
  Sex: Female

DRUGS (1)
  1. DULCOEASE [Suspect]
     Active Substance: DOCUSATE SODIUM
     Dosage: UNK UNK, UNK

REACTIONS (3)
  - Syncope [Unknown]
  - Chills [Unknown]
  - Nausea [Unknown]
